FAERS Safety Report 6328734-2 (Version None)
Quarter: 2009Q3

REPORT INFORMATION
  Report Type: 
  Country: None (occurrence: None)
  Receive Date: 20090826
  Receipt Date: 20090819
  Transmission Date: 20100115
  Serious: Yes (Hospitalization)
  Sender: FDA-Public Use
  Company Number: NL-AVENTIS-200918062GDDC

PATIENT
  Age: 69 Year
  Sex: Female
  Weight: 66 kg

DRUGS (6)
  1. TAXOTERE [Suspect]
     Route: 042
     Dates: start: 20090724, end: 20090724
  2. XELODA [Suspect]
     Dosage: DOSE: 825 MG/M2, 2X/DAY, FROM DAY 1-14
     Route: 048
     Dates: start: 20090724, end: 20090730
  3. ATENOLOL [Concomitant]
     Route: 048
     Dates: start: 19980101
  4. CHLOROTHIAZIDE [Concomitant]
     Route: 048
     Dates: start: 19980101
  5. RAMIPRIL [Concomitant]
     Route: 048
     Dates: start: 19980101
  6. MAGNESIUM HYDROXIDE TAB [Concomitant]
     Route: 048
     Dates: start: 20090728

REACTIONS (7)
  - BONE PAIN [None]
  - DEHYDRATION [None]
  - DIARRHOEA [None]
  - HYPOKALAEMIA [None]
  - HYPONATRAEMIA [None]
  - NEUTROPHIL COUNT DECREASED [None]
  - SYNCOPE [None]
